FAERS Safety Report 6007590-6 (Version None)
Quarter: 2008Q4

REPORT INFORMATION
  Report Type: 
  Country: None (occurrence: None)
  Receive Date: 20081217
  Receipt Date: 20080515
  Transmission Date: 20090506
  Serious: No
  Sender: FDA-Public Use
  Company Number: US-ASTRAZENECA-2008UW10038

PATIENT
  Age: 83 Year
  Sex: Female
  Weight: 63 kg

DRUGS (5)
  1. CRESTOR [Suspect]
     Indication: BLOOD CHOLESTEROL
     Route: 048
     Dates: start: 20080401
  2. AVAPRO [Concomitant]
  3. DILTIAZEM [Concomitant]
  4. GLUCOVANCE [Concomitant]
  5. PLAVIX [Concomitant]

REACTIONS (4)
  - BLADDER PAIN [None]
  - DIZZINESS [None]
  - DYSURIA [None]
  - URINE OUTPUT DECREASED [None]
